FAERS Safety Report 11386665 (Version 1)
Quarter: 2015Q3

REPORT INFORMATION
  Report Type: Spontaneous
  Country: JP (occurrence: JP)
  Receive Date: 20150817
  Receipt Date: 20150817
  Transmission Date: 20151125
  Serious: Yes (Death)
  Sender: FDA-Public Use
  Company Number: JP-JNJFOC-20150809153

PATIENT

DRUGS (1)
  1. RISPERDAL [Suspect]
     Active Substance: RISPERIDONE
     Indication: SEDATION
     Route: 048

REACTIONS (4)
  - Asphyxia [Fatal]
  - Product use issue [Unknown]
  - Incorrect route of drug administration [Unknown]
  - Dysphagia [Unknown]
